FAERS Safety Report 21065072 (Version 1)
Quarter: 2022Q3

REPORT INFORMATION
  Report Type: Other
  Country: GB (occurrence: GB)
  Receive Date: 20220711
  Receipt Date: 20220711
  Transmission Date: 20221027
  Serious: Yes (Life-Threatening, Hospitalization, Other)
  Sender: FDA-Public Use
  Company Number: GB-MHRA-MED-202206291034218870-HZYFR

PATIENT

DRUGS (1)
  1. TOPIRAMATE [Suspect]
     Active Substance: TOPIRAMATE
     Indication: Intracranial pressure increased
     Dosage: 75 MILLIGRAM (50MG MORNING 25MG AT NIGHT), QD; WAS MEANT TO INCREASE TO 100MG A DAY
     Route: 065

REACTIONS (9)
  - Hallucination, auditory [Unknown]
  - Completed suicide [Unknown]
  - Hypophagia [Unknown]
  - Overdose [Unknown]
  - Crying [Unknown]
  - Mood altered [Unknown]
  - Depressed mood [Unknown]
  - Diarrhoea [Unknown]
  - Somnolence [Unknown]

NARRATIVE: CASE EVENT DATE: 20220525
